FAERS Safety Report 5036830-5 (Version None)
Quarter: 2006Q2

REPORT INFORMATION
  Report Type: 
  Country: None (occurrence: None)
  Receive Date: 20060622
  Receipt Date: 20060605
  Transmission Date: 20061013
  Serious: Yes (Hospitalization, Disabling)
  Sender: FDA-Public Use
  Company Number: US200603006326

PATIENT
  Age: 82 Year
  Sex: Female
  Weight: 98 kg

DRUGS (2)
  1. EVISTA [Suspect]
     Indication: OSTEOPOROSIS
     Dosage: 60 MG, DAILY (1/D), ORAL
     Route: 048
     Dates: start: 20020101
  2. CALCIUM (CALCIUM) [Concomitant]

REACTIONS (17)
  - BACK PAIN [None]
  - BODY HEIGHT DECREASED [None]
  - BREAST MASS [None]
  - BREAST SWELLING [None]
  - CATARACT [None]
  - CHEST PAIN [None]
  - DIZZINESS POSTURAL [None]
  - FALL [None]
  - FEAR OF FALLING [None]
  - GAIT DISTURBANCE [None]
  - MALAISE [None]
  - MUSCULAR WEAKNESS [None]
  - NEUROPATHY PERIPHERAL [None]
  - NIPPLE DISORDER [None]
  - SPINAL COMPRESSION FRACTURE [None]
  - URINARY INCONTINENCE [None]
  - WALKING AID USER [None]
